FAERS Safety Report 7547598-2 (Version None)
Quarter: 2011Q2

REPORT INFORMATION
  Report Type: 
  Country: None (occurrence: None)
  Receive Date: 20110614
  Receipt Date: 20110510
  Transmission Date: 20111010
  Serious: Yes (Other)
  Sender: FDA-Public Use
  Company Number: US-BAYER-2011-025777

PATIENT
  Sex: Male
  Weight: 82.993 kg

DRUGS (37)
  1. GADOLINIUM IN UNSPECIFIED DRUG [Suspect]
     Dosage: UNK, ONCE
     Dates: start: 20050228, end: 20050228
  2. GADOLINIUM IN UNSPECIFIED DRUG [Suspect]
     Dosage: UNK, ONCE
     Dates: start: 20070910, end: 20070910
  3. LANTUS [Concomitant]
  4. VASOTEC [Concomitant]
  5. LASIX [Concomitant]
  6. VENOFER [Concomitant]
  7. MAGNEVIST [Suspect]
     Indication: NUCLEAR MAGNETIC RESONANCE IMAGING BRAIN
     Dosage: 20 ML, ONCE
     Route: 042
     Dates: start: 20050617, end: 20050617
  8. GADOLINIUM IN UNSPECIFIED DRUG [Suspect]
     Dosage: UNK, ONCE
     Dates: start: 20050124, end: 20050124
  9. GADOLINIUM IN UNSPECIFIED DRUG [Suspect]
     Dosage: UNK, ONCE
     Dates: start: 20060422, end: 20060422
  10. CELLCEPT [Concomitant]
  11. ARANESP [Concomitant]
  12. GADOLINIUM IN UNSPECIFIED DRUG [Suspect]
     Indication: NUCLEAR MAGNETIC RESONANCE IMAGING BRAIN
     Dosage: UNK
     Dates: start: 20041112, end: 20041112
  13. GADOLINIUM IN UNSPECIFIED DRUG [Suspect]
     Dosage: UNK, ONCE
     Dates: start: 20050425, end: 20050425
  14. GADOLINIUM IN UNSPECIFIED DRUG [Suspect]
     Dosage: UNK, ONCE
     Dates: start: 20050808, end: 20050808
  15. GADOLINIUM IN UNSPECIFIED DRUG [Suspect]
     Dosage: UNK, ONCE
     Dates: start: 20051031, end: 20051031
  16. GADOLINIUM IN UNSPECIFIED DRUG [Suspect]
     Dosage: UNK, ONCE
     Dates: start: 20050128, end: 20050128
  17. GADOLINIUM IN UNSPECIFIED DRUG [Suspect]
     Dosage: UNK, ONCE
     Dates: start: 20060724, end: 20060724
  18. GADOLINIUM IN UNSPECIFIED DRUG [Suspect]
     Dosage: UNK, ONCE
     Dates: start: 20061113, end: 20061113
  19. GADOLINIUM IN UNSPECIFIED DRUG [Suspect]
     Dosage: UNK, ONCE
     Dates: start: 20070212, end: 20070212
  20. PREDNISONE [Concomitant]
  21. PROGRAF [Concomitant]
  22. EPOGEN [Concomitant]
  23. SENSIPAR [Concomitant]
  24. GADOLINIUM IN UNSPECIFIED DRUG [Suspect]
     Dosage: UNK, ONCE
     Dates: start: 20050328, end: 20050328
  25. GADOLINIUM IN UNSPECIFIED DRUG [Suspect]
     Dosage: UNK, ONCE
     Dates: start: 20060130, end: 20060130
  26. MINOXIDIL [Concomitant]
  27. FK507 [Concomitant]
  28. RENAGEL [Concomitant]
  29. RENVELA [Concomitant]
  30. NOVOLOG [Concomitant]
  31. HYDRALAZINE HCL [Concomitant]
  32. LEVOTHROID [Concomitant]
  33. PHOSLO [Concomitant]
  34. OMNISCAN [Suspect]
     Indication: NUCLEAR MAGNETIC RESONANCE IMAGING
  35. GADOLINIUM IN UNSPECIFIED DRUG [Suspect]
     Dosage: UNK, ONCE
     Dates: start: 20070604, end: 20070604
  36. LOPRESSOR [Concomitant]
  37. AMLODIPINE [Concomitant]

REACTIONS (21)
  - MUSCULOSKELETAL STIFFNESS [None]
  - RASH PAPULAR [None]
  - DRY SKIN [None]
  - PAIN [None]
  - JOINT STIFFNESS [None]
  - RASH [None]
  - SKIN HYPERTROPHY [None]
  - RASH ERYTHEMATOUS [None]
  - SKIN INDURATION [None]
  - SKIN TIGHTNESS [None]
  - EXTREMITY CONTRACTURE [None]
  - ARTHRALGIA [None]
  - OEDEMA PERIPHERAL [None]
  - PRURITUS GENERALISED [None]
  - SKIN HYPERPIGMENTATION [None]
  - ERYTHEMA [None]
  - PRURITUS [None]
  - SKIN EXFOLIATION [None]
  - SKIN FIBROSIS [None]
  - NEPHROGENIC SYSTEMIC FIBROSIS [None]
  - SKIN PLAQUE [None]
